FAERS Safety Report 8311156-2 (Version None)
Quarter: 2012Q2

REPORT INFORMATION
  Report Type: 
  Country: None (occurrence: None)
  Receive Date: 20120425
  Receipt Date: 20111201
  Transmission Date: 20120825
  Serious: No
  Sender: FDA-Public Use
  Company Number: US-MYLANLABS-2011S1024916

PATIENT
  Sex: Male

DRUGS (2)
  1. LORAZEPAM [Suspect]
     Indication: ANXIETY
     Route: 048
     Dates: end: 20111201
  2. LORAZEPAM [Suspect]
     Route: 048
     Dates: start: 20111201

REACTIONS (1)
  - TINNITUS [None]
